FAERS Safety Report 16907019 (Version 1)
Quarter: 2019Q4

REPORT INFORMATION
  Report Type: Spontaneous
  Country: CA (occurrence: CA)
  Receive Date: 20191011
  Receipt Date: 20191011
  Transmission Date: 20200122
  Serious: Yes (Other)
  Sender: FDA-Public Use
  Company Number: CA-AUROBINDO-AUR-APL-2019-065155

PATIENT
  Age: 74 Year
  Sex: Female
  Weight: 64 kg

DRUGS (2)
  1. AMLODIPINE [Suspect]
     Active Substance: AMLODIPINE BESYLATE
     Indication: BLOOD PRESSURE MEASUREMENT
     Dosage: 10.0 MILLIGRAM, ONCE A DAY
     Route: 048
  2. BISOPROLOL [Suspect]
     Active Substance: BISOPROLOL
     Indication: PRODUCT USED FOR UNKNOWN INDICATION
     Dosage: 10.0 MILLIGRAM, ONCE A DAY
     Route: 048

REACTIONS (6)
  - Burning sensation [Unknown]
  - Rash macular [Unknown]
  - Skin swelling [Unknown]
  - Paraesthesia [Unknown]
  - Skin tightness [Unknown]
  - Pruritus [Unknown]
